FAERS Safety Report 20055353 (Version 3)
Quarter: 2021Q4

REPORT INFORMATION
  Report Type: Other
  Country: IT (occurrence: None)
  Receive Date: 20211110
  Receipt Date: 20211206
  Transmission Date: 20220303
  Serious: Yes (Life-Threatening, Hospitalization)
  Sender: FDA-Public Use
  Company Number: IT-ROCHE-2947125

PATIENT
  Age: 60 Year
  Sex: Male

DRUGS (13)
  1. OCRELIZUMAB [Suspect]
     Active Substance: OCRELIZUMAB
     Indication: Primary progressive multiple sclerosis
     Route: 042
     Dates: start: 20180511, end: 20211117
  2. METFORMIN [Concomitant]
     Active Substance: METFORMIN HYDROCHLORIDE
     Indication: Diabetes mellitus
     Route: 048
  3. ASPIRIN [Concomitant]
     Active Substance: ASPIRIN
     Indication: Myocardial ischaemia
     Route: 048
  4. LINEZOLID [Concomitant]
     Active Substance: LINEZOLID
  5. MEROPENEM [Concomitant]
     Active Substance: MEROPENEM
  6. LANSOPRAZOLE [Concomitant]
     Active Substance: LANSOPRAZOLE
  7. PREDNISONE [Concomitant]
     Active Substance: PREDNISONE
  8. GLICLAZIDE [Concomitant]
     Active Substance: GLICLAZIDE
  9. CARDIOASAWIN [Concomitant]
  10. PERINDOPRIL [Concomitant]
     Active Substance: PERINDOPRIL
  11. AMLODIPINE [Concomitant]
     Active Substance: AMLODIPINE BESYLATE
  12. ATORVASTATIN [Concomitant]
     Active Substance: ATORVASTATIN
  13. BISOPROLOL [Concomitant]
     Active Substance: BISOPROLOL

REACTIONS (6)
  - COVID-19 pneumonia [Not Recovered/Not Resolved]
  - Haemolysis [Unknown]
  - Melaena [Unknown]
  - Anaemia [Unknown]
  - Anuria [Unknown]
  - Renal function test abnormal [Unknown]

NARRATIVE: CASE EVENT DATE: 20210916
